FAERS Safety Report 21168141 (Version 6)
Quarter: 2023Q1

REPORT INFORMATION
  Report Type: Spontaneous
  Country: US (occurrence: US)
  Receive Date: 20220803
  Receipt Date: 20230112
  Transmission Date: 20230418
  Serious: Yes (Other)
  Sender: FDA-Public Use
  Company Number: US-BRISTOL-MYERS SQUIBB COMPANY-2022-084478

PATIENT
  Age: 74 Year
  Sex: Female

DRUGS (4)
  1. POMALYST [Suspect]
     Active Substance: POMALIDOMIDE
     Indication: Bone marrow transplant
     Dosage: TAKE 1 CAPSULE BY MOUTH EVERY DAY FOR 21 DAYS ON THEN 7 DAYS OFF EVERY 28 DAYS
     Route: 048
  2. POMALYST [Suspect]
     Active Substance: POMALIDOMIDE
     Dosage: TAKE 1 CAPSULE BY MOUTH EVERY DAY
     Route: 048
     Dates: start: 20200505
  3. POMALYST [Suspect]
     Active Substance: POMALIDOMIDE
     Dosage: TAKE 1 CAPSULE BY MOUTH EVERYDAY
     Route: 048
     Dates: start: 20220628
  4. POMALYST [Suspect]
     Active Substance: POMALIDOMIDE
     Route: 048
     Dates: start: 20220628

REACTIONS (14)
  - Skin cancer [Recovered/Resolved]
  - Drug ineffective [Unknown]
  - Decreased immune responsiveness [Unknown]
  - Intentional product use issue [Unknown]
  - Fatigue [Unknown]
  - Incontinence [Unknown]
  - Nausea [Unknown]
  - Neuropathy peripheral [Unknown]
  - Somnolence [Unknown]
  - Constipation [Unknown]
  - Vertebral column mass [Unknown]
  - Depression [Unknown]
  - Condition aggravated [Unknown]
  - Off label use [Unknown]
